FAERS Safety Report 13289359 (Version 3)
Quarter: 2017Q2

REPORT INFORMATION
  Report Type: Spontaneous
  Country: SE (occurrence: SE)
  Receive Date: 20170303
  Receipt Date: 20170413
  Transmission Date: 20170830
  Serious: Yes (Death)
  Sender: FDA-Public Use
  Company Number: SE-ROCHE-1901132

PATIENT
  Age: 66 Year
  Sex: Male

DRUGS (9)
  1. PEVISONE [Concomitant]
     Active Substance: ECONAZOLE
     Route: 065
  2. FUNGORAL [Concomitant]
     Active Substance: KETOCONAZOLE
     Route: 065
  3. BETAPRED [Concomitant]
     Active Substance: BETAMETHASONE SODIUM PHOSPHATE
     Route: 065
  4. MABTHERA [Suspect]
     Active Substance: RITUXIMAB
     Indication: LINEAR IGA DISEASE
     Route: 042
     Dates: start: 20161123, end: 20161123
  5. DAIVOBET [Concomitant]
     Active Substance: BETAMETHASONE DIPROPIONATE\CALCIPOTRIENE
     Route: 065
  6. METFORMIN [Concomitant]
     Active Substance: METFORMIN HYDROCHLORIDE
     Route: 065
  7. PANODIL [Concomitant]
     Active Substance: ACETAMINOPHEN
     Route: 065
  8. ELOCON [Concomitant]
     Active Substance: MOMETASONE FUROATE
     Route: 065
  9. LORATADIN [Concomitant]
     Active Substance: LORATADINE
     Route: 065

REACTIONS (2)
  - Arrhythmia [Fatal]
  - Cardiac arrest [Fatal]

NARRATIVE: CASE EVENT DATE: 20161208
